FAERS Safety Report 19151653 (Version 1)
Quarter: 2021Q2

REPORT INFORMATION
  Report Type: Other
  Country: CA (occurrence: CA)
  Receive Date: 20210419
  Receipt Date: 20210419
  Transmission Date: 20210717
  Serious: Yes (Other)
  Sender: FDA-Public Use
  Company Number: CA-APOTEX-2021AP008785

PATIENT
  Sex: Female

DRUGS (4)
  1. CYCLOSPORINE. [Suspect]
     Active Substance: CYCLOSPORINE
     Indication: BONE MARROW TRANSPLANT
  2. PREDNISONE. [Concomitant]
     Active Substance: PREDNISONE
     Indication: PRODUCT USED FOR UNKNOWN INDICATION
     Dosage: UNK
     Route: 065
  3. CYCLOSPORINE. [Suspect]
     Active Substance: CYCLOSPORINE
     Indication: SCLERODERMA
     Dosage: 50 MILLIGRAM, BID
     Route: 065
  4. CYCLOSPORINE. [Suspect]
     Active Substance: CYCLOSPORINE
     Indication: GRAFT VERSUS HOST DISEASE

REACTIONS (4)
  - Chronic graft versus host disease oral [Not Recovered/Not Resolved]
  - Disease progression [Not Recovered/Not Resolved]
  - Graft versus host disease in skin [Not Recovered/Not Resolved]
  - Therapeutic response decreased [Not Recovered/Not Resolved]
